FAERS Safety Report 5066745-8 (Version None)
Quarter: 2006Q3

REPORT INFORMATION
  Report Type: 
  Country: None (occurrence: None)
  Receive Date: 20060710
  Receipt Date: 20050801
  Transmission Date: 20061208
  Serious: Yes (Hospitalization)
  Sender: FDA-Public Use
  Company Number: US-2005-013284

PATIENT
  Age: 76 Year
  Sex: Male

DRUGS (6)
  1. ULTRAVIST 370 [Suspect]
     Indication: ARTERIOGRAM CORONARY
     Dosage: 25 ML, 1 DOSE, INTRA-ARTERIAL
     Route: 013
     Dates: start: 20050621, end: 20050621
  2. ZETIA [Concomitant]
  3. ZOCOR [Concomitant]
  4. ASPIRIN [Concomitant]
  5. VALIUM [Concomitant]
  6. BENADRYL [Concomitant]

REACTIONS (2)
  - FEELING HOT [None]
  - HYPOTENSION [None]
